FAERS Safety Report 15116876 (Version 1)
Quarter: 2018Q3

REPORT INFORMATION
  Report Type: Spontaneous
  Country: US (occurrence: US)
  Receive Date: 20180706
  Receipt Date: 20180706
  Transmission Date: 20181010
  Serious: Yes (Hospitalization, Other)
  Sender: FDA-Public Use
  Company Number: US-GLAXOSMITHKLINE-US2018118630

PATIENT
  Age: 68 Year
  Sex: Female

DRUGS (1)
  1. BREO ELLIPTA [Suspect]
     Active Substance: FLUTICASONE FUROATE\VILANTEROL TRIFENATATE
     Indication: ASTHMA
     Dosage: 1 PUFF(S), QD
     Dates: start: 20180423, end: 20180521

REACTIONS (11)
  - Swollen tongue [Unknown]
  - Oxygen saturation decreased [Unknown]
  - Poor quality sleep [Unknown]
  - Delirium [Recovered/Resolved]
  - Dyspnoea [Recovered/Resolved]
  - Respiratory tract congestion [Recovered/Resolved]
  - Amnesia [Unknown]
  - Contraindicated product administered [Unknown]
  - Dysphagia [Recovered/Resolved]
  - Ill-defined disorder [Unknown]
  - Pharyngeal oedema [Recovered/Resolved]

NARRATIVE: CASE EVENT DATE: 20180423
